FAERS Safety Report 8258973-5 (Version None)
Quarter: 2012Q2

REPORT INFORMATION
  Report Type: 
  Country: None (occurrence: None)
  Receive Date: 20120403
  Receipt Date: 20120403
  Transmission Date: 20120825
  Serious: No
  Sender: FDA-Public Use
  Company Number: None

PATIENT
  Sex: Female
  Weight: 64.4 kg

DRUGS (2)
  1. VINORELBINE TARTRATE [Suspect]
     Dosage: 104 MG
     Dates: end: 20120316
  2. CISPLATIN [Suspect]
     Dosage: 129 MG
     Dates: end: 20120309

REACTIONS (1)
  - NEUTROPENIA [None]
